FAERS Safety Report 22007246 (Version 6)
Quarter: 2023Q2

REPORT INFORMATION
  Report Type: Spontaneous
  Country: CA (occurrence: CA)
  Receive Date: 20230217
  Receipt Date: 20230520
  Transmission Date: 20230721
  Serious: Yes (Other)
  Sender: FDA-Public Use
  Company Number: CA-CELLTRION INC.-2022CA021530

PATIENT

DRUGS (7)
  1. INFLIXIMAB [Suspect]
     Active Substance: INFLIXIMAB
     Indication: Rheumatoid arthritis
     Dosage: 120 MILLIGRAM PER MILLILITRE, Q2WEEKS/ EVERY 10 DAYS
     Route: 058
     Dates: start: 20221213
  2. INFLIXIMAB [Suspect]
     Active Substance: INFLIXIMAB
     Dosage: UNK
  3. INFLIXIMAB [Suspect]
     Active Substance: INFLIXIMAB
     Dosage: RECEIVED PRESCRIPTION FROM MD TO INCREASE REMSIMA DOSING TO 120MG SC ONCE EVERY 10 DAYS. PATIENT HAS
     Route: 058
  4. PREDNISONE [Concomitant]
     Active Substance: PREDNISONE
     Indication: Rheumatoid arthritis
     Dosage: 5 MILLIGRAM, PT NOT SURE WHEN WILL BEGIN TAPER. MANY CYCLES PREVIOUSLY DUE TO FLARE UP.
     Dates: start: 202208
  5. PREDNISONE [Concomitant]
     Active Substance: PREDNISONE
     Dosage: 10 MG, STICKING WITH PREDNISONE FOR A BIT LONGER, TAPERING OFF BECAUSE SHE IS DOING BETTER
  6. TYLENOL [Concomitant]
     Active Substance: ACETAMINOPHEN
     Dosage: UNK, PRN, (TYLENOL# 3 PRN)
  7. ALEVE [Concomitant]
     Active Substance: NAPROXEN SODIUM
     Indication: Pain
     Dosage: 1 DF PER DAY

REACTIONS (11)
  - Rheumatoid arthritis [Not Recovered/Not Resolved]
  - Keloid scar [Not Recovered/Not Resolved]
  - Neck pain [Not Recovered/Not Resolved]
  - Stress [Unknown]
  - Feeling abnormal [Unknown]
  - Nausea [Not Recovered/Not Resolved]
  - Headache [Not Recovered/Not Resolved]
  - Peripheral swelling [Recovered/Resolved]
  - Pruritus [Not Recovered/Not Resolved]
  - Arthralgia [Unknown]
  - Intentional product use issue [Unknown]

NARRATIVE: CASE EVENT DATE: 20221213
